FAERS Safety Report 10182923 (Version 1)
Quarter: 2014Q2

REPORT INFORMATION
  Report Type: Spontaneous
  Country: US (occurrence: US)
  Receive Date: 20140520
  Receipt Date: 20140520
  Transmission Date: 20141212
  Serious: No
  Sender: FDA-Public Use
  Company Number: US-PFIZER INC-2014134930

PATIENT
  Age: 8 Year
  Sex: Male

DRUGS (2)
  1. QUILLIVANT XR [Suspect]
     Dosage: 8 ML, UNK
     Dates: start: 201309, end: 2014
  2. QUILLIVANT XR [Suspect]
     Dosage: 10 ML, UNK
     Dates: start: 2014

REACTIONS (1)
  - Drug ineffective [Unknown]
